FAERS Safety Report 8791025 (Version 1)
Quarter: 2012Q4

REPORT INFORMATION
  Report Type: Spontaneous
  Country: US (occurrence: None)
  Receive Date: 20120910
  Receipt Date: 20120910
  Transmission Date: 20130627
  Serious: Yes (Hospitalization)
  Sender: FDA-Public Use
  Company Number: UTC-022651

PATIENT
  Age: 33 Year
  Sex: Female

DRUGS (9)
  1. REMODULIN (2.5 MILLIGRAM/MILLILITERS, INJECTION FOR INFUSION) (TREPROSTINIL SODIUM) [Suspect]
     Indication: CHRONIC PULMONARY HEART DISEASE
     Dosage: 0.015 ug/kg, 1 in 1 min
     Route: 058
     Dates: start: 20120614
  2. REMODULIN (2.5 MILLIGRAM/MILLILITERS, INJECTION FOR INFUSION) (TREPROSTINIL SODIUM) [Suspect]
     Indication: CHRONIC PULMONARY HEART DISEASE
  3. FUROSEMIDE [Concomitant]
  4. IBUPROFEN [Concomitant]
  5. PLAQUENIL (HYDROXYCHLOROQUINE) [Concomitant]
  6. DIGOXIN [Concomitant]
  7. PREDNISONE [Concomitant]
  8. ALDACTONE (SPIRONOLACTONE) [Concomitant]
  9. TRACLEER (BOSENTAN) [Concomitant]

REACTIONS (1)
  - Skin infection [None]
